FAERS Safety Report 8010680-X (Version None)
Quarter: 2011Q4

REPORT INFORMATION
  Report Type: 
  Country: None (occurrence: None)
  Receive Date: 20111228
  Receipt Date: 20111215
  Transmission Date: 20120403
  Serious: Yes (Other)
  Sender: FDA-Public Use
  Company Number: FR-SANOFI-AVENTIS-2011SA062411

PATIENT
  Sex: Female
  Weight: 70 kg

DRUGS (7)
  1. ACETAMINOPHEN AND CODEINE PHOSPHATE [Concomitant]
     Indication: PAIN
     Route: 048
  2. CHONDROSULF [Concomitant]
     Dosage: DOSE:3 UNIT(S)
     Route: 048
     Dates: start: 20030101
  3. OMEPRAZOLE [Concomitant]
     Route: 048
     Dates: start: 20090101
  4. PLAQUENIL [Suspect]
     Route: 048
     Dates: start: 20030101
  5. ESTREVA [Concomitant]
     Route: 048
     Dates: start: 20010101
  6. NAPROXEN [Concomitant]
     Dosage: DOSE:2 UNIT(S)
     Route: 048
     Dates: start: 20090101
  7. PROGESTERONE [Concomitant]
     Route: 048
     Dates: start: 20010101

REACTIONS (1)
  - CATARACT [None]
